FAERS Safety Report 13085100 (Version 1)
Quarter: 2017Q1

REPORT INFORMATION
  Report Type: Spontaneous
  Country: US (occurrence: US)
  Receive Date: 20170104
  Receipt Date: 20170104
  Transmission Date: 20170428
  Serious: No
  Sender: FDA-Public Use
  Company Number: None

PATIENT
  Age: 42 Year
  Sex: Female

DRUGS (2)
  1. REBIF [Suspect]
     Active Substance: INTERFERON BETA-1A
     Indication: MULTIPLE SCLEROSIS
  2. REBIF [Suspect]
     Active Substance: INTERFERON BETA-1A
     Indication: BLADDER DISORDER

REACTIONS (3)
  - Pain [None]
  - Fatigue [None]
  - Injection site pain [None]

NARRATIVE: CASE EVENT DATE: 20170103
